APPROVED DRUG PRODUCT: REPAGLINIDE
Active Ingredient: REPAGLINIDE
Strength: 0.5MG
Dosage Form/Route: TABLET;ORAL
Application: A207209 | Product #001 | TE Code: AB
Applicant: MACLEODS PHARMACEUTICALS LTD
Approved: Mar 22, 2023 | RLD: No | RS: No | Type: RX